FAERS Safety Report 7298618-4 (Version None)
Quarter: 2011Q1

REPORT INFORMATION
  Report Type: 
  Country: None (occurrence: None)
  Receive Date: 20110217
  Receipt Date: 20110215
  Transmission Date: 20110831
  Serious: Yes (Death, Hospitalization)
  Sender: FDA-Public Use
  Company Number: PHHY2010US78088

PATIENT
  Sex: Female
  Weight: 51.71 kg

DRUGS (1)
  1. EXJADE [Suspect]
     Indication: MYELODYSPLASTIC SYNDROME
     Dosage: 1000 MG, UNK
     Route: 048
     Dates: start: 20101110, end: 20101126

REACTIONS (8)
  - RENAL FAILURE ACUTE [None]
  - MALAISE [None]
  - FATIGUE [None]
  - LETHARGY [None]
  - ACUTE HEPATIC FAILURE [None]
  - DEHYDRATION [None]
  - DIARRHOEA [None]
  - DEATH [None]
